FAERS Safety Report 4371854-2 (Version None)
Quarter: 2004Q2

REPORT INFORMATION
  Report Type: 
  Country: None (occurrence: None)
  Receive Date: 20040604
  Receipt Date: 20040604
  Transmission Date: 20050107
  Serious: Yes (Hospitalization)
  Sender: FDA-Public Use
  Company Number: None

PATIENT
  Age: 64 Year
  Sex: Female
  Weight: 72 kg

DRUGS (2)
  1. GEMZAR [Suspect]
     Indication: PANCREATIC CARCINOMA
     Dosage: 2110 MG Q W
     Dates: start: 20040324, end: 20040526
  2. IRESSA [Suspect]
     Dosage: 250 MG QD
     Dates: start: 20040324, end: 20040526

REACTIONS (2)
  - CHILLS [None]
  - URINARY TRACT INFECTION [None]
